FAERS Safety Report 15327687 (Version 1)
Quarter: 2018Q3

REPORT INFORMATION
  Report Type: Spontaneous
  Country: US (occurrence: US)
  Receive Date: 20180828
  Receipt Date: 20180828
  Transmission Date: 20181010
  Serious: Yes (Other)
  Sender: FDA-Public Use
  Company Number: US-SA-2018SA003325

PATIENT
  Age: 45 Year
  Sex: Female

DRUGS (2)
  1. TAXOTERE [Suspect]
     Active Substance: DOCETAXEL
     Indication: BREAST CANCER
     Dosage: EVERY TWO WEEK
     Route: 042
     Dates: start: 20090918, end: 20090918
  2. TAXOTERE [Suspect]
     Active Substance: DOCETAXEL
     Dosage: EVERY TWO WEEK
     Route: 042
     Dates: start: 200911, end: 200911

REACTIONS (2)
  - Alopecia [Recovering/Resolving]
  - Psychological trauma [Unknown]

NARRATIVE: CASE EVENT DATE: 2009
